FAERS Safety Report 5443700-7 (Version None)
Quarter: 2007Q3

REPORT INFORMATION
  Report Type: 
  Country: None (occurrence: None)
  Receive Date: 20070730
  Receipt Date: 20070209
  Transmission Date: 20080115
  Serious: Yes (Hospitalization)
  Sender: FDA-Public Use
  Company Number: 236712

PATIENT
  Age: 67 Year
  Sex: Male

DRUGS (8)
  1. RITUXAN [Suspect]
     Indication: LYMPHOMA
  2. CYTARABINE [Concomitant]
  3. CYTOXAN [Concomitant]
  4. ETOPOSIDE [Concomitant]
  5. STEROIDS (UNK INGREDIENTS) (STEROID NOS) [Concomitant]
  6. FLUDARABINE (FLUDARABINE PHOSPHATE) [Concomitant]
  7. CYCLOPHOSPHAMIDE [Concomitant]
  8. MITOXANTRONE (MITOXANTRONE HYDROCHLORIDE) [Concomitant]

REACTIONS (1)
  - PANCYTOPENIA [None]
